FAERS Safety Report 7538287-9 (Version None)
Quarter: 2011Q2

REPORT INFORMATION
  Report Type: 
  Country: None (occurrence: None)
  Receive Date: 20110609
  Receipt Date: 20020705
  Transmission Date: 20111010
  Serious: Yes (Death)
  Sender: FDA-Public Use
  Company Number: PHFR2002GB02018

PATIENT
  Sex: Male

DRUGS (3)
  1. CLOZAPINE [Suspect]
     Indication: SCHIZOPHRENIA
     Dosage: 200MG TID/50MG NOCTE
     Route: 048
     Dates: start: 19921015, end: 20020605
  2. ASPIRIN [Concomitant]
     Indication: TRANSIENT ISCHAEMIC ATTACK
     Dosage: 75MG/DAY
     Route: 048
  3. VALPROATE SODIUM [Concomitant]
     Indication: DEPRESSION
     Dosage: 500MG MANE/1000MG NOCTE
     Route: 048

REACTIONS (1)
  - LUNG NEOPLASM MALIGNANT [None]
